FAERS Safety Report 25948247 (Version 2)
Quarter: 2025Q4

REPORT INFORMATION
  Report Type: Spontaneous
  Country: US (occurrence: US)
  Receive Date: 20251022
  Receipt Date: 20251216
  Transmission Date: 20260117
  Serious: No
  Sender: SANOFI AVENTIS
  Company Number: US-SA-2025SA313254

PATIENT
  Age: 23 Year
  Sex: Male
  Weight: 75 kg

DRUGS (3)
  1. DUPIXENT [Suspect]
     Active Substance: DUPILUMAB
     Indication: Dermatitis atopic
     Dosage: UNK, QOW
     Route: 058
     Dates: end: 2025
  2. DUPIXENT [Suspect]
     Active Substance: DUPILUMAB
     Dosage: UNK UNK, QOW
     Route: 058
     Dates: start: 20251005
  3. EPIPEN [Concomitant]
     Active Substance: EPINEPHRINE
     Indication: Hypersensitivity
     Dosage: AS NEEDED

REACTIONS (11)
  - Memory impairment [Unknown]
  - Abdominal discomfort [Unknown]
  - Dyspnoea [Unknown]
  - Chest pain [Unknown]
  - Hypoaesthesia [Unknown]
  - Fatigue [Unknown]
  - Brain fog [Unknown]
  - Mood altered [Unknown]
  - Insomnia [Unknown]
  - Dizziness [Unknown]
  - Vision blurred [Unknown]

NARRATIVE: CASE EVENT DATE: 20241201
